FAERS Safety Report 8217769-0 (Version None)
Quarter: 2012Q1

REPORT INFORMATION
  Report Type: 
  Country: None (occurrence: None)
  Receive Date: 20120319
  Receipt Date: 20120309
  Transmission Date: 20120608
  Serious: Yes (Other)
  Sender: FDA-Public Use
  Company Number: US-AMGEN-USASP2012015827

PATIENT

DRUGS (1)
  1. ENBREL [Suspect]
     Dosage: 25 MG, 2 TIMES/WK
     Route: 064
     Dates: start: 20040101, end: 20060101

REACTIONS (3)
  - BLOOD BILIRUBIN INCREASED [None]
  - YELLOW SKIN [None]
  - OCULAR ICTERUS [None]
